FAERS Safety Report 7399804 (Version 4)
Quarter: 2012Q4

REPORT INFORMATION
  Report Type: Report from Study
  Country: BR (occurrence: BR)
  Receive Date: 20100526
  Receipt Date: 20121228
  Transmission Date: 20130627
  Serious: Yes (Hospitalization, Other)
  Sender: FDA-Public Use
  Company Number: BR-ABBOTT-10P-020-0646278-00

PATIENT
  Age: 37 None
  Sex: Male
  Weight: 120 kg

DRUGS (11)
  1. HUMIRA 40 MG/ 0.8 ML PRE-FILLED SYRINGE [Suspect]
     Indication: PSORIATIC ARTHROPATHY
     Route: 058
     Dates: start: 20090801, end: 2010
  2. PURAN T4 [Concomitant]
     Indication: THYROID DISORDER
     Route: 048
  3. METFORMIN [Concomitant]
     Indication: DIABETES MELLITUS
     Dosage: 1 tablet at lunch and 1 in the dinner
     Route: 048
     Dates: start: 1997
  4. SIMVASTATIN [Concomitant]
     Indication: BLOOD CHOLESTEROL ABNORMAL
     Route: 048
  5. GLICLAZIDE [Concomitant]
     Indication: DIABETES MELLITUS
     Route: 048
     Dates: start: 2010
  6. LEVOTHYROXINE [Concomitant]
     Indication: THYROID DISORDER
     Route: 048
     Dates: start: 1996
  7. ENALAPRIL [Concomitant]
     Indication: BLOOD PRESSURE
     Dates: start: 2010
  8. VICTOZA [Concomitant]
     Indication: DIABETES MELLITUS
     Dosage: 1.2 ml in the dinner
     Dates: start: 201208
  9. HALOPERIDOL [Concomitant]
     Indication: BLOOD URIC ACID
     Route: 048
     Dates: start: 2010
  10. ACETYLSALICYLIC ACID [Concomitant]
     Indication: CARDIOVASCULAR DISORDER
     Route: 048
     Dates: start: 2010
  11. ACETYLSALICYLIC ACID [Concomitant]
     Indication: CARDIAC DISORDER

REACTIONS (7)
  - Pyrexia [Not Recovered/Not Resolved]
  - Device related infection [Recovered/Resolved]
  - Nephrolithiasis [Recovered/Resolved]
  - Tremor [Not Recovered/Not Resolved]
  - Blood urine present [Not Recovered/Not Resolved]
  - Pyuria [Not Recovered/Not Resolved]
  - Weight decreased [Unknown]
